FAERS Safety Report 7942002-4 (Version None)
Quarter: 2011Q4

REPORT INFORMATION
  Report Type: 
  Country: None (occurrence: None)
  Receive Date: 20111122
  Receipt Date: 20111111
  Transmission Date: 20120403
  Serious: Yes (Other)
  Sender: FDA-Public Use
  Company Number: 0222174

PATIENT
  Age: 38 Year
  Sex: Female

DRUGS (2)
  1. TACHOSIL [Suspect]
     Indication: CAESAREAN SECTION
     Dates: start: 20100708
  2. TAZOREX (PIPERACILLIN W/TAZOBACTAM) [Concomitant]

REACTIONS (4)
  - IATROGENIC INJURY [None]
  - MATERNAL EXPOSURE TIMING UNSPECIFIED [None]
  - MEDICATION RESIDUE [None]
  - CAESAREAN SECTION [None]
